FAERS Safety Report 6710570-6 (Version None)
Quarter: 2010Q2

REPORT INFORMATION
  Report Type: 
  Country: None (occurrence: None)
  Receive Date: 20100430
  Receipt Date: 20100315
  Transmission Date: 20101027
  Serious: Yes (Hospitalization)
  Sender: FDA-Public Use
  Company Number: INT_00018_2010

PATIENT
  Sex: Female

DRUGS (2)
  1. CEFTAZIDIME [Suspect]
     Indication: CYSTIC FIBROSIS
     Dosage: (DF)
  2. COLISTIN (COLISTIN) [Suspect]
     Indication: CYSTIC FIBROSIS
     Dosage: (DF)

REACTIONS (1)
  - HOSPITALISATION [None]
